FAERS Safety Report 22017097 (Version 1)
Quarter: 2023Q1

REPORT INFORMATION
  Report Type: Report from Study
  Country: IT (occurrence: IT)
  Receive Date: 20230221
  Receipt Date: 20230221
  Transmission Date: 20230418
  Serious: Yes (Hospitalization, Other)
  Sender: FDA-Public Use
  Company Number: None

PATIENT
  Age: 14 Year
  Sex: Female
  Weight: 63 kg

DRUGS (4)
  1. VINCRISTINE [Suspect]
     Active Substance: VINCRISTINE
     Indication: Ependymoma malignant
     Dosage: 2 MILLIGRAM DAILY; 2 MG/DAY, VINCRISTINA TEVA ITALY
     Route: 065
     Dates: start: 20230102, end: 20230102
  2. CYCLOPHOSPHAMIDE [Suspect]
     Active Substance: CYCLOPHOSPHAMIDE
     Indication: Ependymoma malignant
     Dosage: 1633 MILLIGRAM DAILY; 1633 MG/DAY (X 3 SUMM.)
     Dates: start: 20230102, end: 20230102
  3. ETOPOSIDE [Suspect]
     Active Substance: ETOPOSIDE
     Indication: Ependymoma malignant
     Dosage: 163 MILLIGRAM DAILY; 163 MG/DAY
     Dates: start: 20230102, end: 20230104
  4. KEPPRA [Concomitant]
     Active Substance: LEVETIRACETAM
     Indication: Generalised tonic-clonic seizure
     Dosage: 2000 MILLIGRAM DAILY; 1000 MG EVERY 12 HOURS
     Dates: start: 20221017

REACTIONS (2)
  - Pancytopenia [Not Recovered/Not Resolved]
  - Febrile neutropenia [Recovered/Resolved]

NARRATIVE: CASE EVENT DATE: 20230109
